FAERS Safety Report 7553600-4 (Version None)
Quarter: 2011Q2

REPORT INFORMATION
  Report Type: 
  Country: None (occurrence: None)
  Receive Date: 20110609
  Receipt Date: 20110526
  Transmission Date: 20111010
  Serious: Yes (Hospitalization)
  Sender: FDA-Public Use
  Company Number: 1000021423

PATIENT
  Sex: Female

DRUGS (3)
  1. UNSPECIIFED MEDICATIONS (UNSPECIFIED MEDICATIONS) (UNSPECIFIED MEDICAT [Concomitant]
  2. ROFLUMILAST (ROFLUMILAST) (500 MICROGRAM, TABLETS) [Suspect]
     Indication: CHRONIC OBSTRUCTIVE PULMONARY DISEASE
     Dosage: ORAL
     Route: 048
  3. HOMEOPATHIC MEDICATION (NOS) (HOMEOPATHIC MEDICATION (NOS)) (HOMEOPATH [Concomitant]

REACTIONS (1)
  - ANGIOEDEMA [None]
